FAERS Safety Report 6564711-4 (Version None)
Quarter: 2010Q1

REPORT INFORMATION
  Report Type: 
  Country: None (occurrence: None)
  Receive Date: 20100201
  Receipt Date: 20091111
  Transmission Date: 20100710
  Serious: No
  Sender: FDA-Public Use
  Company Number: A0816527A

PATIENT
  Age: 64 Year
  Sex: Female

DRUGS (4)
  1. TREXIMET [Suspect]
     Indication: MIGRAINE
     Dosage: 2TAB SINGLE DOSE
     Route: 048
     Dates: start: 20090501, end: 20090501
  2. ARTHROTEC [Concomitant]
  3. SYNTHROID [Concomitant]
  4. BONIVA [Concomitant]

REACTIONS (1)
  - DIZZINESS [None]
